FAERS Safety Report 14239177 (Version 1)
Quarter: 2017Q4

REPORT INFORMATION
  Report Type: Spontaneous
  Country: US (occurrence: None)
  Receive Date: 20171129
  Receipt Date: 20171129
  Transmission Date: 20180321
  Serious: Yes (Death)
  Sender: FDA-Public Use
  Company Number: None

PATIENT
  Age: 20 Year
  Sex: Female

DRUGS (2)
  1. TOBRAMYCIN 300MG/5ML HOSPIRA [Suspect]
     Active Substance: TOBRAMYCIN SULFATE
     Indication: CYSTIC FIBROSIS
     Dosage: 300MG/ 5 ML 1 VIAL B.I.D. INHALATION
     Route: 055
     Dates: start: 20170919, end: 20171104
  2. PULMOZYME [Suspect]
     Active Substance: DORNASE ALFA
     Indication: CYSTIC FIBROSIS
     Route: 055
     Dates: start: 20150413, end: 20171104

REACTIONS (1)
  - Death [None]

NARRATIVE: CASE EVENT DATE: 20171104
